FAERS Safety Report 7235303-9 (Version None)
Quarter: 2011Q1

REPORT INFORMATION
  Report Type: 
  Country: None (occurrence: None)
  Receive Date: 20110120
  Receipt Date: 20110112
  Transmission Date: 20110831
  Serious: Yes (Other)
  Sender: FDA-Public Use
  Company Number: CA-JNJFOC-20110103643

PATIENT
  Sex: Male
  Weight: 65 kg

DRUGS (2)
  1. REMICADE [Suspect]
     Indication: CROHN'S DISEASE
     Route: 042
  2. REMICADE [Suspect]
     Route: 042

REACTIONS (7)
  - DYSPNOEA [None]
  - ANXIETY [None]
  - INFUSION RELATED REACTION [None]
  - DIZZINESS [None]
  - STRESS [None]
  - NAUSEA [None]
  - VOMITING [None]
